FAERS Safety Report 6449269-2 (Version None)
Quarter: 2009Q4

REPORT INFORMATION
  Report Type: 
  Country: None (occurrence: None)
  Receive Date: 20091112
  Receipt Date: 20080820
  Transmission Date: 20100525
  Serious: Yes (Hospitalization)
  Sender: FDA-Public Use
  Company Number: 200813969

PATIENT
  Sex: Male

DRUGS (1)
  1. VIVAGLOBIN [Suspect]

REACTIONS (3)
  - BLOOD PRESSURE DECREASED [None]
  - CHILLS [None]
  - PYREXIA [None]
